FAERS Safety Report 5569265-7 (Version None)
Quarter: 2007Q4

REPORT INFORMATION
  Report Type: 
  Country: None (occurrence: None)
  Receive Date: 20071220
  Receipt Date: 20071001
  Transmission Date: 20080405
  Serious: No
  Sender: FDA-Public Use
  Company Number: A0685326A

PATIENT
  Age: 64 Year
  Sex: Male

DRUGS (4)
  1. AVODART [Suspect]
     Indication: BENIGN PROSTATIC HYPERPLASIA
     Dosage: .5MG PER DAY
     Route: 048
  2. FLOMAX [Concomitant]
  3. CRESTOR [Concomitant]
  4. RHINOCORT [Concomitant]

REACTIONS (3)
  - LIBIDO DECREASED [None]
  - PREMATURE EJACULATION [None]
  - SEMEN VOLUME DECREASED [None]
